FAERS Safety Report 25450131 (Version 1)
Quarter: 2025Q2

REPORT INFORMATION
  Report Type: Spontaneous
  Country: DE (occurrence: DE)
  Receive Date: 20250618
  Receipt Date: 20250618
  Transmission Date: 20250716
  Serious: Yes (Hospitalization)
  Sender: AUROBINDO
  Company Number: DE-ASTRAZENECA-202504GLO015886DE

PATIENT
  Age: 64 Year
  Sex: Female

DRUGS (13)
  1. PACLITAXEL [Suspect]
     Active Substance: PACLITAXEL
     Indication: Triple negative breast cancer
     Route: 042
     Dates: start: 20240515, end: 20240731
  2. CARBOPLATIN [Suspect]
     Active Substance: CARBOPLATIN
     Indication: Triple negative breast cancer
     Route: 042
     Dates: start: 20240515, end: 20240731
  3. PEMBROLIZUMAB [Suspect]
     Active Substance: PEMBROLIZUMAB
     Indication: Triple negative breast cancer
     Route: 042
     Dates: start: 20240515, end: 20240515
  4. PEMBROLIZUMAB [Suspect]
     Active Substance: PEMBROLIZUMAB
     Route: 042
     Dates: start: 20240605
  5. EPIRUBICIN [Suspect]
     Active Substance: EPIRUBICIN
     Indication: Triple negative breast cancer
     Route: 042
     Dates: start: 20240813, end: 20241015
  6. CYCLOPHOSPHAMIDE [Suspect]
     Active Substance: CYCLOPHOSPHAMIDE
     Indication: Triple negative breast cancer
     Route: 042
     Dates: start: 20240813, end: 20241015
  7. CAPECITABINE [Suspect]
     Active Substance: CAPECITABINE
     Indication: Triple negative breast cancer
     Route: 048
  8. Amara pascoe [Concomitant]
     Indication: Nausea
     Route: 048
     Dates: start: 20240529
  9. SESAME OIL [Concomitant]
     Active Substance: SESAME OIL
     Indication: Nasal dryness
     Route: 045
     Dates: start: 20240606
  10. DEXAMETHASONE [Concomitant]
     Active Substance: DEXAMETHASONE
     Indication: Nasal dryness
     Dosage: 24 MILLIGRAM, ONCE A DAY
     Route: 048
     Dates: start: 20240924
  11. Thyrox [Concomitant]
     Indication: Hypothyroidism
     Route: 048
     Dates: start: 20231201
  12. Golden [Concomitant]
     Indication: Biopsy kidney
     Dosage: 5 DROP, TWO TIMES A DAY (5.00 GTT TWICE PER DAY)
     Route: 048
     Dates: start: 20240626
  13. Euphrasia [Concomitant]
     Indication: Dry eye
     Route: 047
     Dates: start: 20240508

REACTIONS (1)
  - Bronchitis [Not Recovered/Not Resolved]

NARRATIVE: CASE EVENT DATE: 20250417
